FAERS Safety Report 6389461 (Version 22)
Quarter: 2013Q3

REPORT INFORMATION
  Report Type: Spontaneous
  Country: US (occurrence: US)
  Receive Date: 20070823
  Receipt Date: 20130806
  Transmission Date: 20140515
  Serious: Yes (Death, Hospitalization, Other)
  Sender: FDA-Public Use
  Company Number: PHEH2007US11263

PATIENT
  Age: 54 Year
  Sex: Female
  Weight: 54 kg

DRUGS (46)
  1. AREDIA [Suspect]
     Dosage: 90 MG,
     Route: 042
     Dates: start: 199611, end: 200501
  2. ZOMETA [Suspect]
     Dosage: 4 MG, QMO
     Route: 042
     Dates: start: 200306, end: 200511
  3. FOSAMAX [Suspect]
     Dates: start: 1995
  4. PROZAC [Concomitant]
  5. TAMOXIFEN [Concomitant]
  6. NEURONTIN [Concomitant]
  7. LORTAB [Concomitant]
  8. CALCIUM [Concomitant]
  9. VITAMIN B [Concomitant]
  10. ASPIRIN ^BAYER^ [Concomitant]
  11. AMBIEN [Concomitant]
  12. IMITREX ^CERENEX^ [Concomitant]
  13. DIFLUCAN [Concomitant]
  14. HYDROCODONE W/ACETAMINOPHEN [Concomitant]
  15. ERYTHROMYCIN [Concomitant]
  16. PENICILLIN ^GRUNENTHAL^ [Concomitant]
  17. SULFAMETHOXAZOLE [Concomitant]
  18. GABAPENTIN [Concomitant]
  19. REQUIP [Concomitant]
  20. PAMIDRONATE DISODIUM [Concomitant]
  21. FLUOXETINE [Concomitant]
  22. CYTOXAN [Concomitant]
  23. ADRIAMYCIN [Concomitant]
  24. VERSED [Concomitant]
  25. BACITRACIN [Concomitant]
  26. ANCEF [Concomitant]
  27. VALIUM [Concomitant]
  28. MAZICON [Concomitant]
  29. ISOVUE [Concomitant]
  30. BOLUS [Concomitant]
  31. TYLENOL [Concomitant]
  32. IBUPROFEN [Concomitant]
  33. AMITRIPTYLINE [Concomitant]
  34. ANACIN [Concomitant]
  35. CELEXA [Concomitant]
  36. CITALOPRAM [Concomitant]
  37. ENOXAPARIN [Concomitant]
  38. FERROUS SULFATE [Concomitant]
  39. HEPARIN [Concomitant]
  40. MULTIPLE VITAMINS [Concomitant]
  41. ONDANSETRON [Concomitant]
  42. PANTOPRAZOLE [Concomitant]
  43. SUMATRIPTAN [Concomitant]
  44. TRAMADOL [Concomitant]
  45. HYDROCODONE W/APAP [Concomitant]
  46. COUMADIN ^BOOTS^ [Concomitant]

REACTIONS (84)
  - Death [Fatal]
  - Appendicitis [Unknown]
  - Abdominal pain [Unknown]
  - Osteonecrosis of jaw [Unknown]
  - Pain [Unknown]
  - Injury [Unknown]
  - Emotional distress [Unknown]
  - Bone disorder [Unknown]
  - Dental caries [Unknown]
  - Swelling [Unknown]
  - Impaired healing [Unknown]
  - Loose tooth [Unknown]
  - Infection [Unknown]
  - Wound secretion [Unknown]
  - Toothache [Unknown]
  - Tooth abscess [Unknown]
  - Tooth disorder [Unknown]
  - Carpal tunnel syndrome [Unknown]
  - Hernia [Unknown]
  - Squamous cell carcinoma of skin [Unknown]
  - Actinic keratosis [Unknown]
  - Spinal osteoarthritis [Unknown]
  - Erosive oesophagitis [Unknown]
  - Gastritis [Unknown]
  - Gastric ulcer [Unknown]
  - Duodenal stenosis [Unknown]
  - Hiatus hernia [Unknown]
  - Pulmonary mass [Unknown]
  - Micturition urgency [Unknown]
  - Pyelonephritis [Unknown]
  - Flank pain [Unknown]
  - Weight decreased [Unknown]
  - Nausea [Unknown]
  - Dysphagia [Unknown]
  - Decreased appetite [Unknown]
  - Klebsiella infection [Unknown]
  - Post-traumatic headache [Unknown]
  - Status migrainosus [Unknown]
  - Photophobia [Unknown]
  - Cerebral calcification [Unknown]
  - Oedema peripheral [Unknown]
  - Deep vein thrombosis [Unknown]
  - Anaemia [Unknown]
  - Hypertension [Unknown]
  - Restless legs syndrome [Unknown]
  - Scoliosis [Unknown]
  - Depression [Unknown]
  - Hypoaesthesia [Unknown]
  - Tension headache [Unknown]
  - Urinary tract infection [Unknown]
  - Pollakiuria [Unknown]
  - Dysuria [Unknown]
  - Urine analysis abnormal [Unknown]
  - Head injury [Unknown]
  - Subdural haematoma [Unknown]
  - Intracranial pressure increased [Unknown]
  - Cerebral infarction [Unknown]
  - Scar [Unknown]
  - Haematemesis [Unknown]
  - Haemorrhage intracranial [Unknown]
  - Ecchymosis [Unknown]
  - Thrombocytopenia [Unknown]
  - Coagulopathy [Unknown]
  - Lymphoedema [Unknown]
  - Fall [Unknown]
  - Lung infiltration [Unknown]
  - Pulmonary congestion [Unknown]
  - Cardiac murmur [Unknown]
  - Cardiac failure congestive [Unknown]
  - Sinus tachycardia [Unknown]
  - Pulmonary hypertension [Unknown]
  - Cardiomyopathy [Unknown]
  - Pulmonary oedema [Unknown]
  - Conjunctival haemorrhage [Unknown]
  - Thrombophlebitis superficial [Unknown]
  - Venous occlusion [Unknown]
  - Gastrooesophageal reflux disease [Unknown]
  - Oesophageal stenosis [Unknown]
  - Tricuspid valve incompetence [Unknown]
  - Pericardial effusion [Unknown]
  - Pleural effusion [Unknown]
  - Vena cava thrombosis [Unknown]
  - Metastases to spine [Unknown]
  - Metastases to bone [Unknown]
